FAERS Safety Report 12296460 (Version 1)
Quarter: 2016Q2

REPORT INFORMATION
  Report Type: Not Available
  Country: US (occurrence: US)
  Receive Date: 20160422
  Receipt Date: 20160422
  Transmission Date: 20160815
  Serious: Yes (Other)
  Sender: FDA-Public Use
  Company Number: US-ANIPHARMA-2016-US-002450

PATIENT
  Age: 50 Year
  Sex: Male
  Weight: 64.86 kg

DRUGS (15)
  1. PROTONIX [Concomitant]
     Active Substance: PANTOPRAZOLE SODIUM
     Dosage: 40 MG ONCE A DAY
     Route: 048
     Dates: start: 2010
  2. CELEXA [Concomitant]
     Active Substance: CITALOPRAM HYDROBROMIDE
     Dosage: 40 MG DAILY
     Route: 048
     Dates: start: 2011
  3. ATIVAN [Concomitant]
     Active Substance: LORAZEPAM
     Dosage: 0.5 MG 4 TIMES A DAY
     Route: 065
     Dates: start: 2011
  4. ZOCOR [Concomitant]
     Active Substance: SIMVASTATIN
     Dosage: 80 MG QHS
     Route: 048
     Dates: start: 2010
  5. CORTENEMA [Suspect]
     Active Substance: HYDROCORTISONE
     Dosage: 100 MG ONCE DAILY
     Route: 054
     Dates: start: 20150601, end: 20150804
  6. LOPRESSOR [Concomitant]
     Active Substance: METOPROLOL TARTRATE
     Dosage: 12.5 MG TWICE A DAY
     Route: 048
     Dates: start: 2009
  7. MARIJUANA [Concomitant]
     Active Substance: CANNABIS SATIVA SUBSP. INDICA TOP
     Dosage: 0.25 OUNCE AS NEEDED
     Route: 055
     Dates: start: 2012
  8. PROVENTIL [Concomitant]
     Active Substance: ALBUTEROL
     Dosage: 90 UG PRN
     Route: 055
     Dates: start: 2010
  9. LISINOPRIL. [Concomitant]
     Active Substance: LISINOPRIL
     Dosage: 10 MG DAILY
     Route: 048
     Dates: start: 2011, end: 20150615
  10. BENTYL [Concomitant]
     Active Substance: DICYCLOMINE HYDROCHLORIDE
     Dosage: 20 MG 4 TIMES A DAY
     Route: 048
     Dates: start: 2001
  11. DELZICOL [Concomitant]
     Active Substance: MESALAMINE
     Dosage: 400 MG 4 TIMES A DAY
     Route: 048
     Dates: start: 2001
  12. VISTARIL [Concomitant]
     Active Substance: HYDROXYZINE PAMOATE
     Dosage: 50 MG PRN UP TO 4 TIMES DAILY
     Route: 048
     Dates: start: 2011
  13. AZULFIDE [Concomitant]
     Dosage: 2000 MG TWICE A DAY
     Route: 048
     Dates: start: 20150528
  14. PF-04950615;PLACEBO (CODE NOT BROKEN) [Suspect]
     Active Substance: BOCOCIZUMAB
     Dosage: BLINDED, INFORMATION WITHHELD
     Route: 058
     Dates: start: 20141222
  15. PLAVIX [Concomitant]
     Active Substance: CLOPIDOGREL BISULFATE
     Route: 065
     Dates: start: 2010

REACTIONS (4)
  - Cardiac failure congestive [None]
  - Angioedema [Unknown]
  - Hypokalaemia [None]
  - Anaemia [None]

NARRATIVE: CASE EVENT DATE: 20150608
